FAERS Safety Report 14297276 (Version 1)
Quarter: 2017Q4

REPORT INFORMATION
  Report Type: Spontaneous
  Country: US (occurrence: US)
  Receive Date: 20171218
  Receipt Date: 20171218
  Transmission Date: 20180321
  Serious: No
  Sender: FDA-Public Use
  Company Number: US-BAYER-2017-241788

PATIENT
  Age: 8 Year
  Sex: Female
  Weight: 40.36 kg

DRUGS (1)
  1. MIRALAX [Suspect]
     Active Substance: POLYETHYLENE GLYCOL 3350
     Indication: GASTROINTESTINAL DISORDER
     Dosage: UNK
     Dates: start: 2014

REACTIONS (4)
  - Constipation [Unknown]
  - Circumstance or information capable of leading to medication error [Unknown]
  - Inappropriate prescribing [Unknown]
  - Incorrect drug administration duration [Unknown]

NARRATIVE: CASE EVENT DATE: 2014
